FAERS Safety Report 5813289-9 (Version None)
Quarter: 2008Q3

REPORT INFORMATION
  Report Type: 
  Country: None (occurrence: None)
  Receive Date: 20080717
  Receipt Date: 20080716
  Transmission Date: 20090109
  Serious: Yes (Hospitalization)
  Sender: FDA-Public Use
  Company Number: DE-JNJFOC-20080703643

PATIENT
  Age: 33 Year
  Sex: Female

DRUGS (2)
  1. TAVANIC [Suspect]
     Indication: CYSTITIS
     Route: 048
  2. CYSTINOL [Concomitant]
     Route: 048

REACTIONS (3)
  - DRUG EXPOSURE DURING PREGNANCY [None]
  - FOETAL GROWTH RETARDATION [None]
  - PLACENTAL INSUFFICIENCY [None]
